FAERS Safety Report 12393454 (Version 2)
Quarter: 2017Q2

REPORT INFORMATION
  Report Type: Spontaneous
  Country: US (occurrence: US)
  Receive Date: 20160523
  Receipt Date: 20170522
  Transmission Date: 20170830
  Serious: Yes (Hospitalization)
  Sender: FDA-Public Use
  Company Number: US-GLAXOSMITHKLINE-US2016071886

PATIENT
  Age: 46 Year
  Sex: Female

DRUGS (16)
  1. LOTEMAX [Concomitant]
     Active Substance: LOTEPREDNOL ETABONATE
  2. SYNTHROID [Concomitant]
     Active Substance: LEVOTHYROXINE SODIUM
  3. PLAQUENIL [Concomitant]
     Active Substance: HYDROXYCHLOROQUINE SULFATE
  4. RESTASIS [Concomitant]
     Active Substance: CYCLOSPORINE
  5. LANOXIN [Concomitant]
     Active Substance: DIGOXIN
  6. TOPAMAX [Concomitant]
     Active Substance: TOPIRAMATE
  7. PREDNISONE. [Concomitant]
     Active Substance: PREDNISONE
  8. ROBAXIN [Concomitant]
     Active Substance: METHOCARBAMOL
  9. BENLYSTA [Suspect]
     Active Substance: BELIMUMAB
     Indication: SYSTEMIC LUPUS ERYTHEMATOSUS
     Dosage: UNK, CYC; USUALLY ONCE A MONTH
     Route: 042
     Dates: start: 2013
  10. GABAPENTIN. [Concomitant]
     Active Substance: GABAPENTIN
  11. FLEXERIL [Concomitant]
     Active Substance: CYCLOBENZAPRINE HYDROCHLORIDE
  12. BENLYSTA [Suspect]
     Active Substance: BELIMUMAB
     Indication: SJOGREN^S SYNDROME
  13. SAVELLA [Concomitant]
     Active Substance: MILNACIPRAN HYDROCHLORIDE
  14. CEVIMELINE. [Concomitant]
     Active Substance: CEVIMELINE
  15. FOLIC ACID. [Concomitant]
     Active Substance: FOLIC ACID
  16. IMURAN [Concomitant]
     Active Substance: AZATHIOPRINE

REACTIONS (9)
  - Bacterial vaginosis [Recovering/Resolving]
  - Drug dose omission [Not Recovered/Not Resolved]
  - Product supply issue [Not Recovered/Not Resolved]
  - Arthralgia [Unknown]
  - Herpes zoster [Unknown]
  - Therapeutic response shortened [Not Recovered/Not Resolved]
  - Cystitis [Not Recovered/Not Resolved]
  - Joint swelling [Unknown]
  - Infection [Unknown]

NARRATIVE: CASE EVENT DATE: 2015
